FAERS Safety Report 21652661 (Version 1)
Quarter: 2022Q4

REPORT INFORMATION
  Report Type: Spontaneous
  Country: CZ (occurrence: CZ)
  Receive Date: 20221128
  Receipt Date: 20221128
  Transmission Date: 20230113
  Serious: Yes (Life-Threatening, Hospitalization, Disabling, Other)
  Sender: FDA-Public Use
  Company Number: None

PATIENT
  Age: 60 Year
  Sex: Female
  Weight: 73 kg

DRUGS (4)
  1. OPDIVO [Suspect]
     Active Substance: NIVOLUMAB
     Indication: Adenocarcinoma of colon
     Dosage: COMBINED IMUNOTHERAPY - 3 APPLICATIONS IN TOTAL - ONCE EVERY 3 WEEKS
     Route: 042
     Dates: start: 20220912, end: 20221025
  2. OPDIVO [Suspect]
     Active Substance: NIVOLUMAB
     Dosage: 3 APPLICATIONS IN TOTAL - ONCE EVERY 3 WEEKS
     Route: 042
     Dates: start: 20220912, end: 20221025
  3. YERVOY [Suspect]
     Active Substance: IPILIMUMAB
     Indication: Adenocarcinoma of colon
     Dosage: COMBINED IMUNOTHERAPY - 3 APPLICATIONS IN TOTAL - ONCE EVERY 3 WEEKS
     Route: 042
     Dates: start: 20220912, end: 20221025
  4. LEVOTHYROXINE SODIUM [Concomitant]
     Active Substance: LEVOTHYROXINE SODIUM
     Indication: Product used for unknown indication
     Route: 065

REACTIONS (1)
  - Hypophysitis [Recovering/Resolving]

NARRATIVE: CASE EVENT DATE: 20221029
